FAERS Safety Report 7913128-6 (Version None)
Quarter: 2011Q4

REPORT INFORMATION
  Report Type: 
  Country: None (occurrence: None)
  Receive Date: 20111114
  Receipt Date: 20111108
  Transmission Date: 20120403
  Serious: Yes (Hospitalization, Other)
  Sender: FDA-Public Use
  Company Number: BR-ABBOTT-11P-020-0872727-00

PATIENT
  Sex: Male
  Weight: 78 kg

DRUGS (10)
  1. HUMIRA [Suspect]
  2. CAPTOPRIL [Concomitant]
     Indication: HYPERTENSION
     Route: 048
     Dates: start: 20110501
  3. CAPTOPRIL [Concomitant]
     Route: 048
     Dates: start: 20060101
  4. CALCIUM OYSTER [Concomitant]
     Indication: MINERAL SUPPLEMENTATION
     Route: 048
     Dates: start: 20060101
  5. DICLOFENAC SODIUM [Concomitant]
     Indication: RHEUMATOID ARTHRITIS
     Route: 048
     Dates: start: 20110801
  6. PREDINISONE [Concomitant]
     Indication: ANTIINFLAMMATORY THERAPY
     Route: 048
     Dates: start: 20030101
  7. ALENDRONATE SODIUM [Concomitant]
     Indication: OSTEOPOROSIS PROPHYLAXIS
     Route: 048
     Dates: start: 20070101
  8. HUMIRA [Suspect]
     Indication: RHEUMATOID ARTHRITIS
     Route: 058
     Dates: start: 20030101, end: 20090101
  9. NAPROXEN [Concomitant]
     Indication: RHEUMATOID ARTHRITIS
     Route: 048
     Dates: start: 20030101, end: 20110801
  10. TRIAMTERENE AND HYDROCHLOROTHIAZIDE [Concomitant]
     Indication: DIURETIC THERAPY
     Route: 048
     Dates: start: 20060101

REACTIONS (5)
  - ERYSIPELAS [None]
  - BLOOD PRESSURE INCREASED [None]
  - CEREBRAL ISCHAEMIA [None]
  - DIABETES MELLITUS [None]
  - CEREBROVASCULAR ACCIDENT [None]
